FAERS Safety Report 4881387-2 (Version None)
Quarter: 2006Q1

REPORT INFORMATION
  Report Type: 
  Country: None (occurrence: None)
  Receive Date: 20060111
  Receipt Date: 20060111
  Transmission Date: 20060701
  Serious: Yes (Disabling)
  Sender: FDA-Public Use
  Company Number: None

PATIENT
  Age: 61 Year
  Sex: Male
  Weight: 79.3795 kg

DRUGS (2)
  1. LYRICA [Suspect]
     Indication: NEURALGIA
     Dosage: 75 MG TABS 1 DAILY
     Dates: start: 20051111, end: 20051209
  2. LYRICA [Suspect]
     Indication: SCIATICA
     Dosage: 75 MG TABS 1 DAILY
     Dates: start: 20051111, end: 20051209

REACTIONS (1)
  - BLINDNESS UNILATERAL [None]
